FAERS Safety Report 9873889 (Version 2)
Quarter: 2014Q1

REPORT INFORMATION
  Report Type: Other
  Country: US (occurrence: US)
  Receive Date: 20140206
  Receipt Date: 20140206
  Transmission Date: 20141002
  Serious: No
  Sender: FDA-Public Use
  Company Number: US-ACORDA-ACO_33690_2013

PATIENT
  Age: 49 Year
  Sex: Male
  Weight: 140.59 kg

DRUGS (4)
  1. AMPYRA [Suspect]
     Indication: GAIT DISTURBANCE
     Dosage: 10 MG, Q 12 HRS
     Route: 048
     Dates: start: 201212
  2. COPAXONE [Concomitant]
     Indication: PRODUCT USED FOR UNKNOWN INDICATION
     Dosage: UNK
  3. PANTOPRAZOLE [Concomitant]
     Indication: PRODUCT USED FOR UNKNOWN INDICATION
     Dosage: UNK
  4. XANAX [Concomitant]
     Indication: GENERALISED ANXIETY DISORDER
     Dosage: UNK

REACTIONS (6)
  - Pressure of speech [Unknown]
  - Aggression [Unknown]
  - Vitamin B complex deficiency [Unknown]
  - Blood testosterone decreased [Unknown]
  - Insomnia [Unknown]
  - Multiple sclerosis [Unknown]
